FAERS Safety Report 5535281-4 (Version None)
Quarter: 2007Q4

REPORT INFORMATION
  Report Type: 
  Country: None (occurrence: None)
  Receive Date: 20071204
  Receipt Date: 20071204
  Transmission Date: 20080405
  Serious: Yes (Hospitalization)
  Sender: FDA-Public Use
  Company Number: None

PATIENT
  Age: 49 Year
  Sex: Female
  Weight: 60.3284 kg

DRUGS (1)
  1. LEVAQUIN [Suspect]
     Indication: DIVERTICULUM
     Dosage: DAILY PO
     Route: 048
     Dates: start: 20070219, end: 20070224

REACTIONS (11)
  - DEAFNESS [None]
  - DECREASED APPETITE [None]
  - DIZZINESS [None]
  - DYSPHAGIA [None]
  - DYSSTASIA [None]
  - FATIGUE [None]
  - HYPOAESTHESIA [None]
  - MULTIPLE SCLEROSIS [None]
  - PARAESTHESIA [None]
  - SENSORY DISTURBANCE [None]
  - SKIN TIGHTNESS [None]
